FAERS Safety Report 5119521-1 (Version None)
Quarter: 2006Q4

REPORT INFORMATION
  Report Type: 
  Country: None (occurrence: None)
  Receive Date: 20061003
  Receipt Date: 20060928
  Transmission Date: 20070319
  Serious: Yes (Death)
  Sender: FDA-Public Use
  Company Number: US-BRISTOL-MYERS SQUIBB COMPANY-13524343

PATIENT
  Age: 46 Year
  Sex: Male
  Weight: 69 kg

DRUGS (9)
  1. PACLITAXEL [Suspect]
     Indication: NON-SMALL CELL LUNG CANCER
     Route: 042
     Dates: start: 20051125, end: 20051125
  2. CARBOPLATIN [Suspect]
     Indication: NON-SMALL CELL LUNG CANCER
     Route: 042
     Dates: start: 20051125, end: 20051125
  3. TLK286 [Suspect]
     Indication: NON-SMALL CELL LUNG CANCER
     Route: 042
     Dates: start: 20051125, end: 20051125
  4. LOVENOX [Concomitant]
     Dates: start: 20051021
  5. FLEXERIL [Concomitant]
     Dates: start: 20051021
  6. VICODIN [Concomitant]
     Dates: start: 20051021
  7. PERCOCET [Concomitant]
     Dates: start: 20051026
  8. DEXAMETHASONE TAB [Concomitant]
     Dates: start: 20051103
  9. COUMADIN [Concomitant]
     Dates: start: 20051015

REACTIONS (2)
  - MALIGNANT NEOPLASM PROGRESSION [None]
  - SUDDEN DEATH [None]
